FAERS Safety Report 12238670 (Version 1)
Quarter: 2016Q2

REPORT INFORMATION
  Report Type: Spontaneous
  Country: US (occurrence: US)
  Receive Date: 20160405
  Receipt Date: 20160405
  Transmission Date: 20160815
  Serious: Yes (Hospitalization)
  Sender: FDA-Public Use
  Company Number: US-TEVA-604581USA

PATIENT
  Age: 70 Year
  Sex: Male
  Weight: 96.02 kg

DRUGS (2)
  1. WARFARIN [Suspect]
     Active Substance: WARFARIN
     Indication: ATRIAL FIBRILLATION
  2. TAFAMIDIS MEGLUMINE (PLACEBO) CODE NOT BROKEN [Suspect]
     Active Substance: TAFAMIDIS MEGLUMINE
     Indication: CARDIOMYOPATHY
     Dates: start: 20140704, end: 20140803

REACTIONS (2)
  - Haematuria [Recovered/Resolved]
  - Thrombosis [None]

NARRATIVE: CASE EVENT DATE: 20140803
